FAERS Safety Report 12238746 (Version 1)
Quarter: 2016Q2

REPORT INFORMATION
  Report Type: Spontaneous
  Country: US (occurrence: US)
  Receive Date: 20160405
  Receipt Date: 20160405
  Transmission Date: 20160815
  Serious: No
  Sender: FDA-Public Use
  Company Number: US-TEVA-592323USA

PATIENT
  Sex: Male

DRUGS (4)
  1. TAMSULOSIN [Suspect]
     Active Substance: TAMSULOSIN
  2. WARFARIN [Suspect]
     Active Substance: WARFARIN
  3. FLUDROCORTISONE [Suspect]
     Active Substance: FLUDROCORTISONE
  4. TOTAL PARENTERAL NUTRITION (TPN) [Concomitant]

REACTIONS (1)
  - Electrolyte imbalance [Unknown]
